FAERS Safety Report 6570455-5 (Version None)
Quarter: 2010Q1

REPORT INFORMATION
  Report Type: 
  Country: None (occurrence: None)
  Receive Date: 20100204
  Receipt Date: 20090706
  Transmission Date: 20100710
  Serious: No
  Sender: FDA-Public Use
  Company Number: A0795503A

PATIENT
  Sex: Female

DRUGS (3)
  1. ARIXTRA [Suspect]
     Indication: PULMONARY EMBOLISM
     Dosage: 2.5MG PER DAY
     Route: 058
     Dates: start: 20090628
  2. CLONAZEPAM [Concomitant]
  3. COUMADIN [Concomitant]
     Indication: PULMONARY EMBOLISM

REACTIONS (3)
  - COLD SWEAT [None]
  - HYPERAESTHESIA [None]
  - NAUSEA [None]
